FAERS Safety Report 6108695-1 (Version None)
Quarter: 2009Q1

REPORT INFORMATION
  Report Type: 
  Country: None (occurrence: None)
  Receive Date: 20090305
  Receipt Date: 20090224
  Transmission Date: 20090719
  Serious: Yes (Life-Threatening, Hospitalization)
  Sender: FDA-Public Use
  Company Number: 20096300

PATIENT
  Sex: Female
  Weight: 56.7 kg

DRUGS (1)
  1. BACLOFEN [Suspect]
     Indication: MUSCLE SPASTICITY
     Dosage: DAILY, INTRATHECAL
     Route: 037

REACTIONS (4)
  - ABDOMINAL DISTENSION [None]
  - INFLAMMATION [None]
  - LEIOMYOSARCOMA [None]
  - UTERINE NEOPLASM [None]
